FAERS Safety Report 6571683-5 (Version None)
Quarter: 2010Q1

REPORT INFORMATION
  Report Type: 
  Country: None (occurrence: None)
  Receive Date: 20100205
  Receipt Date: 20100129
  Transmission Date: 20100710
  Serious: Yes (Other)
  Sender: FDA-Public Use
  Company Number: PHHY2010AR05125

PATIENT
  Age: 79 Year
  Sex: Female

DRUGS (1)
  1. EXELON [Suspect]
     Indication: PARKINSON'S DISEASE
     Dosage: 1 DF, QD
     Route: 062
     Dates: start: 20100124, end: 20100130

REACTIONS (4)
  - DYSSTASIA [None]
  - GAIT DISTURBANCE [None]
  - SENSATION OF HEAVINESS [None]
  - THERAPY CESSATION [None]
